FAERS Safety Report 9903285 (Version 1)
Quarter: 2014Q1

REPORT INFORMATION
  Report Type: Spontaneous
  Country: US (occurrence: US)
  Receive Date: 20140217
  Receipt Date: 20140217
  Transmission Date: 20141002
  Serious: Yes (Hospitalization)
  Sender: FDA-Public Use
  Company Number: PHHY2014US014834

PATIENT
  Age: 65 Year
  Sex: Male
  Weight: 53.6 kg

DRUGS (20)
  1. ASCORBIC ACID [Suspect]
     Dosage: 500 MG, BID
  2. WARFARIN [Interacting]
     Dosage: 5 MG, UNK
  3. WARFARIN [Interacting]
     Dosage: 20 MG, UNK
  4. WARFARIN [Interacting]
     Dosage: 15 MG, UNK
  5. WARFARIN [Interacting]
     Dosage: 5 MG, EVERY EVENING
     Route: 048
  6. WARFARIN [Interacting]
     Dosage: 3.5 MG, UNK
  7. ENOXAPARIN SODIUM [Concomitant]
     Dosage: 60 MG, BID
     Route: 058
  8. AMLODIPINE [Concomitant]
     Dosage: 2.5 MG, UNK
  9. ASPIRIN [Concomitant]
     Dosage: 81 MG, UNK
  10. CARVEDILOL [Concomitant]
     Dosage: 12.5 MG, BID
  11. ESOMEPRAZOLE [Concomitant]
     Dosage: 40 MG, UNK
  12. FUROSEMIDE [Concomitant]
     Dosage: 80 MG, UNK
     Route: 048
  13. LORAZEPAM [Concomitant]
     Dosage: 0.5 MG AT BEDTIME AS NEEDED
  14. LOSARTAN [Concomitant]
     Dosage: 50 MG, UNK
  15. MAGNESIUM [Concomitant]
     Dosage: 400 MG, UNK
  16. NICOTINE [Concomitant]
     Dosage: 14 MG/24 HR DAILY
     Route: 062
  17. SIMVASTATIN [Concomitant]
     Dosage: 10 MG DAILY AT BEDTIME
  18. TIOTROPIUM BROMIDE [Concomitant]
     Dosage: 18 UG, UNK
     Route: 055
  19. VITAMIN D [Concomitant]
     Dosage: 400 DF, UNK
  20. IRON SUPPLEMENTS [Concomitant]

REACTIONS (3)
  - International normalised ratio increased [Recovered/Resolved]
  - Drug resistance [Unknown]
  - Drug interaction [Recovered/Resolved]
